FAERS Safety Report 8809140 (Version 1)
Quarter: 2012Q4

REPORT INFORMATION
  Report Type: 
  Country: GB (occurrence: GB)
  Receive Date: 20120926
  Receipt Date: 20120926
  Transmission Date: 20130627
  Serious: Yes (Hospitalization)
  Sender: FDA-Public Use
  Company Number: PHHY2012GB081881

PATIENT
  Age: 26 Year
  Sex: Male

DRUGS (3)
  1. PREDNISOLONE [Suspect]
     Indication: ULCER
     Dosage: 30 mg, UNK
  2. DERMOVATE [Suspect]
     Indication: ULCER
  3. IMMUNOGLOBULINS [Concomitant]
     Route: 042

REACTIONS (8)
  - Disease progression [Unknown]
  - Infected skin ulcer [Recovering/Resolving]
  - Synovitis [Recovered/Resolved]
  - Arthralgia [Recovered/Resolved]
  - Staphylococcus test positive [Unknown]
  - Enterobacter test positive [Unknown]
  - Helicobacter test positive [Unknown]
  - Joint range of motion decreased [Unknown]
